FAERS Safety Report 14548784 (Version 1)
Quarter: 2018Q1

REPORT INFORMATION
  Report Type: Spontaneous
  Country: US (occurrence: US)
  Receive Date: 20180219
  Receipt Date: 20180219
  Transmission Date: 20180509
  Serious: No
  Sender: FDA-Public Use
  Company Number: US-ROCHE-1942045

PATIENT
  Age: 18 Year
  Sex: Female

DRUGS (1)
  1. XOLAIR [Suspect]
     Active Substance: OMALIZUMAB
     Indication: IDIOPATHIC ANGIOEDEMA
     Dosage: 300 MG EVERY TWO (NO UNIT INDICATED).
     Route: 065
     Dates: start: 201410

REACTIONS (2)
  - Off label use [Unknown]
  - No adverse event [Unknown]
